FAERS Safety Report 9066087 (Version 2)
Quarter: 2013Q2

REPORT INFORMATION
  Report Type: Spontaneous
  Country: FR (occurrence: FR)
  Receive Date: 20130214
  Receipt Date: 20130402
  Transmission Date: 20140414
  Serious: Yes (Other)
  Sender: FDA-Public Use
  Company Number: FR-B.I. PHARMACEUTICALS,INC./RIDGEFIELD-2013-FF-00475FF

PATIENT
  Age: 72 Year
  Sex: Male
  Weight: 83 kg

DRUGS (4)
  1. PRADAXA [Suspect]
     Indication: ATRIAL FIBRILLATION
     Dosage: 300 MG
     Route: 048
     Dates: start: 201204, end: 201209
  2. KARDEGIC [Concomitant]
     Dosage: 75 MG
  3. BISOPROLOL [Concomitant]
     Dosage: 2.5 MG
  4. EZETROL [Concomitant]
     Dosage: 10 MG

REACTIONS (1)
  - Cerebellar infarction [Recovered/Resolved]
